FAERS Safety Report 7773117-1 (Version None)
Quarter: 2011Q3

REPORT INFORMATION
  Report Type: 
  Country: None (occurrence: None)
  Receive Date: 20110922
  Receipt Date: 20110113
  Transmission Date: 20111222
  Serious: No
  Sender: FDA-Public Use
  Company Number: US-ASTRAZENECA-2008UW26600

PATIENT
  Age: 670 Month
  Sex: Female
  Weight: 63.5 kg

DRUGS (11)
  1. AMITRIPTYLINE HCL [Concomitant]
     Dates: start: 20010101
  2. LIPITOR [Concomitant]
     Dates: start: 20020101
  3. ZESTRIL [Concomitant]
     Dates: start: 20020101
  4. ETODOLAC [Concomitant]
     Dates: start: 20010101
  5. CLONAZEPAM [Concomitant]
     Dates: start: 20020101
  6. ATENOLOL [Concomitant]
     Dates: start: 20020101
  7. IBUPROFEN [Concomitant]
     Indication: MIGRAINE
     Dates: start: 20060201
  8. PROTONIX [Concomitant]
     Dates: start: 20020101
  9. SEROQUEL [Suspect]
     Indication: DEPRESSION
     Dosage: 25-300 MG
     Route: 048
     Dates: start: 20020115, end: 20060801
  10. ZOLOFT [Concomitant]
     Dosage: 50-100 MG
     Dates: start: 20010101
  11. ADALAT [Concomitant]
     Dates: start: 20020101

REACTIONS (2)
  - UTERINE DISORDER [None]
  - DIABETES MELLITUS [None]
